FAERS Safety Report 4771512-6 (Version None)
Quarter: 2005Q3

REPORT INFORMATION
  Report Type: 
  Country: None (occurrence: None)
  Receive Date: 20050913
  Receipt Date: 20050913
  Transmission Date: 20060218
  Serious: Yes (Hospitalization)
  Sender: FDA-Public Use
  Company Number: None

PATIENT
  Age: 64 Year
  Sex: Male
  Weight: 79.8331 kg

DRUGS (1)
  1. PHENYTOIN SODIUMGENERIC 100MG MYLAN [Suspect]
     Indication: CONVULSION
     Dosage: 100MG 3 TIMES DAILY PO
     Route: 048
     Dates: start: 20050802, end: 20050907

REACTIONS (8)
  - BLISTER [None]
  - BURNING SENSATION [None]
  - ERYTHEMA [None]
  - GENERALISED OEDEMA [None]
  - MALAISE [None]
  - PAIN [None]
  - SKIN DISCOLOURATION [None]
  - SKIN EXFOLIATION [None]
